FAERS Safety Report 7303860-X (Version None)
Quarter: 2011Q1

REPORT INFORMATION
  Report Type: 
  Country: None (occurrence: None)
  Receive Date: 20110221
  Receipt Date: 20110209
  Transmission Date: 20110831
  Serious: Yes (Other)
  Sender: FDA-Public Use
  Company Number: A0914312A

PATIENT
  Age: 64 Year
  Sex: Female

DRUGS (2)
  1. TYKERB [Suspect]
     Indication: BREAST CANCER
     Dosage: 1250MGD PER DAY
     Route: 065
     Dates: start: 20100601, end: 20101201
  2. XELODA [Suspect]
     Dosage: 3000MG CYCLIC
     Route: 065
     Dates: start: 20100601, end: 20101201

REACTIONS (8)
  - DERMATITIS [None]
  - SKIN FRAGILITY [None]
  - DRY SKIN [None]
  - RASH PAPULAR [None]
  - ONYCHOCLASIS [None]
  - DECREASED APPETITE [None]
  - DYSPHAGIA [None]
  - PALMAR-PLANTAR ERYTHRODYSAESTHESIA SYNDROME [None]
